FAERS Safety Report 5740508-X (Version None)
Quarter: 2008Q2

REPORT INFORMATION
  Report Type: 
  Country: None (occurrence: None)
  Receive Date: 20080513
  Receipt Date: 20080505
  Transmission Date: 20081010
  Serious: Yes (Hospitalization)
  Sender: FDA-Public Use
  Company Number: APP200800352

PATIENT
  Age: 75 Year
  Sex: Male
  Weight: 94.57 kg

DRUGS (5)
  1. HEPARIN SODIUM INJECTION [Suspect]
     Indication: ANTICOAGULANT THERAPY
     Dosage: 7000 USP UNITS, ONCE, INTRAVENOUS BOLUS
     Route: 040
     Dates: start: 20080502, end: 20080502
  2. CONTRAST DYE (CONTRAST MEDIA) [Suspect]
     Indication: DRUG USE FOR UNKNOWN INDICATION
     Dates: start: 20080502
  3. WARFARIN SODIUM [Concomitant]
  4. MECLIZINE [Concomitant]
  5. LIPITOR [Concomitant]

REACTIONS (1)
  - ANAPHYLACTIC REACTION [None]
